FAERS Safety Report 4368359-1 (Version None)
Quarter: 2004Q2

REPORT INFORMATION
  Report Type: 
  Country: None (occurrence: None)
  Receive Date: 20040525
  Receipt Date: 20040510
  Transmission Date: 20050107
  Serious: Yes (Disabling)
  Sender: FDA-Public Use
  Company Number: 2004-SW-00132SF

PATIENT
  Age: 36 Year
  Sex: Male

DRUGS (2)
  1. MICARDIS [Suspect]
     Indication: HYPERTENSION
     Dosage: 80 MG (40 MG, 1 IN 12 HR)
     Route: 048
     Dates: start: 20040318, end: 20040407
  2. NEUROTOL (CARBAMAZEPINE) (TAD) [Concomitant]

REACTIONS (3)
  - DIFFICULTY IN WALKING [None]
  - NODULE ON EXTREMITY [None]
  - PAIN IN EXTREMITY [None]
